FAERS Safety Report 10564172 (Version 1)
Quarter: 2014Q4

REPORT INFORMATION
  Report Type: Spontaneous
  Country: US (occurrence: US)
  Receive Date: 20141104
  Receipt Date: 20141104
  Transmission Date: 20150529
  Serious: Yes (Other)
  Sender: FDA-Public Use
  Company Number: US-BAYER-2014-159556

PATIENT
  Age: 80 Year
  Sex: Male
  Weight: 65.76 kg

DRUGS (3)
  1. ONE A DAY MEN^S HEALTH FORMULA [Suspect]
     Active Substance: VITAMINS
     Dosage: 1 DF, QD WITH FOOD
     Route: 048
     Dates: start: 201409
  2. BAYER LOW DOSE [Suspect]
     Active Substance: ASPIRIN
     Dosage: 0.5 DF, QD
  3. BAYER LOW DOSE [Suspect]
     Active Substance: ASPIRIN
     Dosage: 1 DF, QD
     Route: 048

REACTIONS (4)
  - Haemorrhagic diathesis [Recovered/Resolved]
  - Therapeutic response unexpected [None]
  - Haemorrhagic diathesis [Recovered/Resolved]
  - Diarrhoea [Recovered/Resolved]

NARRATIVE: CASE EVENT DATE: 201409
